FAERS Safety Report 24238857 (Version 1)
Quarter: 2024Q3

REPORT INFORMATION
  Report Type: Spontaneous
  Country: NL (occurrence: None)
  Receive Date: 20240822
  Receipt Date: 20240822
  Transmission Date: 20241017
  Serious: Yes (Other)
  Sender: ASTRAZENECA
  Company Number: 2024A184881

PATIENT
  Age: 60 Year
  Sex: Female
  Weight: 102 kg

DRUGS (15)
  1. BENRALIZUMAB [Suspect]
     Active Substance: BENRALIZUMAB
     Indication: Asthma
     Dosage: 1X PER 6WK
     Dates: start: 20190201
  2. MEPOLIZUMAB [Suspect]
     Active Substance: MEPOLIZUMAB
     Indication: Asthma
     Dosage: 1X PER MAAND
     Dates: start: 20180301, end: 20190201
  3. LOSARTAN [Concomitant]
     Active Substance: LOSARTAN\LOSARTAN POTASSIUM
     Dosage: FILM-COATED TABLET, 100 MG (MILLIGRAM)
  4. CLEMASTINE [Concomitant]
     Active Substance: CLEMASTINE
     Dosage: TABLET, 1 MG (MILLIGRAM)
  5. OMEPRAZOLE [Concomitant]
     Active Substance: OMEPRAZOLE
     Dosage: GASTRO-RESISTANT TABLET, 40 MG (MILLIGRAM)
  6. TEMAZEPAM [Concomitant]
     Active Substance: TEMAZEPAM
     Dosage: CAPSULE, 10 MG (MILLIGRAM)
  7. TIOTROPIUM [Concomitant]
     Active Substance: TIOTROPIUM
     Dosage: NEBULIZER SOLUTION, 2.5/2.5 ?G/DOSE (MICROGRAMS PER DOSE)
  8. FUROSEMIDE [Concomitant]
     Active Substance: FUROSEMIDE
     Dosage: TABLET, 40 MG (MILLIGRAM)
  9. FERROUS FUMARATE [Concomitant]
     Active Substance: FERROUS FUMARATE
     Dosage: TABLET, 200 MG (MILLIGRAM)
  10. MONTELUKAST [Concomitant]
     Active Substance: MONTELUKAST SODIUM
     Dosage: COATED TABLET, 10 MG (MILLIGRAM)
  11. MAGNESIUM [Concomitant]
     Active Substance: MAGNESIUM
     Dosage: 376 MG
  12. CALCI-CHEW D3 [Concomitant]
     Dosage: CHEWABLE TABLET, 1.25 G (GRAM)/800 UNITS
  13. AZITHROMYCIN [Concomitant]
     Active Substance: AZITHROMYCIN
     Dosage: TABLET, 500 MG (MILLIGRAM)
  14. BUDESONIDE [Concomitant]
     Active Substance: BUDESONIDE
     Dosage: AEROSOL, 200 ?G/DOSE (MICROGRAMS PER DOSE)
  15. METOPROLOL SUCCINATE [Concomitant]
     Active Substance: METOPROLOL SUCCINATE
     Dosage: CONTROLLED RELEASE TABLET, 50 MG (MILLIGRAM)

REACTIONS (1)
  - Meningioma [Recovered/Resolved]

NARRATIVE: CASE EVENT DATE: 20220101
